FAERS Safety Report 9114434 (Version 1)
Quarter: 2013Q1

REPORT INFORMATION
  Report Type: Spontaneous
  Country: ES (occurrence: ES)
  Receive Date: 20130208
  Receipt Date: 20130208
  Transmission Date: 20140127
  Serious: Yes (Other)
  Sender: FDA-Public Use
  Company Number: ES-PFIZER INC-2012277605

PATIENT
  Age: 66 Year
  Sex: Male

DRUGS (7)
  1. TRANGOREX [Suspect]
     Indication: ATRIAL FLUTTER
     Dosage: 200MG/DAY
     Route: 048
     Dates: start: 20110827, end: 20120830
  2. ALDACTONE [Suspect]
     Dosage: 25 MG, UNK
     Route: 048
     Dates: start: 201108
  3. ACOVIL [Suspect]
     Dosage: 25 MG, UNK
     Route: 048
     Dates: start: 201108
  4. SILOSTAR [Suspect]
     Dosage: 5 MG, UNK
     Route: 065
     Dates: start: 201108
  5. EMCONCOR COR [Concomitant]
     Dosage: UNK
  6. ADIRO [Concomitant]
     Dosage: UNK
  7. SERC [Concomitant]
     Dosage: UNK

REACTIONS (1)
  - Hyperthyroidism [Recovering/Resolving]
